FAERS Safety Report 6372319-9 (Version None)
Quarter: 2009Q3

REPORT INFORMATION
  Report Type: 
  Country: None (occurrence: None)
  Receive Date: 20090924
  Receipt Date: 20090126
  Transmission Date: 20100115
  Serious: Yes (Hospitalization)
  Sender: FDA-Public Use
  Company Number: US-ASTRAZENECA-2008UW21880

PATIENT
  Age: 43 Year
  Sex: Female
  Weight: 104.3 kg

DRUGS (8)
  1. SEROQUEL [Suspect]
     Indication: BIPOLAR DISORDER
     Dosage: 25 MG TO 800 MG
     Route: 048
     Dates: start: 20030701
  2. ABILIFY [Concomitant]
  3. CLOZARIL [Concomitant]
  4. HALDOL [Concomitant]
  5. THORAZINE [Concomitant]
  6. ZYPREXA [Concomitant]
  7. XANAX [Concomitant]
  8. AMITRIPTYLINE [Concomitant]

REACTIONS (7)
  - ANAEMIA [None]
  - BLOOD CHOLESTEROL INCREASED [None]
  - BRONCHITIS [None]
  - DIABETES MELLITUS [None]
  - EMPHYSEMA [None]
  - OBESITY [None]
  - THYROID DISORDER [None]
